FAERS Safety Report 23428004 (Version 1)
Quarter: 2024Q1

REPORT INFORMATION
  Report Type: Spontaneous
  Country: US (occurrence: None)
  Receive Date: 20240119
  Receipt Date: 20240119
  Transmission Date: 20240410
  Serious: No
  Sender: FDA-Public Use
  Company Number: None

PATIENT

DRUGS (1)
  1. LITHIUM [Suspect]
     Active Substance: LITHIUM
     Dosage: OTHER STRENGTH : 8/5 MEQ/ML;?
     Route: 048

REACTIONS (3)
  - Product use complaint [None]
  - Product packaging issue [None]
  - Product dose confusion [None]
